FAERS Safety Report 7657084-7 (Version None)
Quarter: 2011Q3

REPORT INFORMATION
  Report Type: 
  Country: None (occurrence: None)
  Receive Date: 20110804
  Receipt Date: 20100813
  Transmission Date: 20111222
  Serious: No
  Sender: FDA-Public Use
  Company Number: US-GLAXOSMITHKLINE-A0875774A

PATIENT
  Age: 90 Year
  Sex: Male

DRUGS (6)
  1. FINASTERIDE [Concomitant]
  2. ASPIRIN [Concomitant]
  3. LISINOPRIL [Concomitant]
  4. TERAZOSIN HCL [Concomitant]
  5. SIMVASTATIN [Concomitant]
  6. ADVAIR DISKUS 100/50 [Suspect]
     Indication: DYSPNOEA
     Route: 055

REACTIONS (3)
  - DRY MOUTH [None]
  - CANDIDIASIS [None]
  - DRUG INEFFECTIVE [None]
